FAERS Safety Report 14937882 (Version 2)
Quarter: 2018Q4

REPORT INFORMATION
  Report Type: Spontaneous
  Country: JP (occurrence: JP)
  Receive Date: 20180525
  Receipt Date: 20181022
  Transmission Date: 20190204
  Serious: Yes (Hospitalization, Other)
  Sender: FDA-Public Use
  Company Number: JP-ELI_LILLY_AND_COMPANY-JP201805010556

PATIENT
  Age: 59 Year
  Sex: Male
  Weight: 75 kg

DRUGS (8)
  1. ERBITUX [Suspect]
     Active Substance: CETUXIMAB
     Dosage: 270 MG, WEEKLY (1/W)
     Route: 041
     Dates: start: 20180327, end: 20180522
  2. ERBITUX [Suspect]
     Active Substance: CETUXIMAB
     Indication: GINGIVAL CANCER
     Dosage: 750 MG, UNKNOWN
     Route: 041
     Dates: start: 20160712, end: 20160712
  3. ERBITUX [Suspect]
     Active Substance: CETUXIMAB
     Dosage: 270 MG, WEEKLY (1/W)
     Route: 041
     Dates: start: 20180109, end: 20180116
  4. ERBITUX [Suspect]
     Active Substance: CETUXIMAB
     Dosage: 450 MG, WEEKLY (1/W)
     Route: 041
     Dates: start: 20180320, end: 20180320
  5. ERBITUX [Suspect]
     Active Substance: CETUXIMAB
     Dosage: 470 MG, WEEKLY (1/W)
     Route: 041
     Dates: start: 20160719, end: 20160913
  6. PACLITAXEL. [Concomitant]
     Active Substance: PACLITAXEL
     Indication: GINGIVAL CANCER
     Dosage: UNK, WEEKLY (1/W)
     Dates: start: 20160712
  7. ERBITUX [Suspect]
     Active Substance: CETUXIMAB
     Dosage: 270 MG, WEEKLY (1/W)
     Route: 041
     Dates: start: 20171017, end: 20171205
  8. ERBITUX [Suspect]
     Active Substance: CETUXIMAB
     Dosage: 360 MG, WEEKLY (1/W)
     Route: 041
     Dates: start: 20160920, end: 20171003

REACTIONS (3)
  - Cyst [Unknown]
  - Off label use [Unknown]
  - Pneumothorax [Recovering/Resolving]

NARRATIVE: CASE EVENT DATE: 2017
